FAERS Safety Report 7788176-X (Version None)
Quarter: 2011Q3

REPORT INFORMATION
  Report Type: 
  Country: None (occurrence: None)
  Receive Date: 20110930
  Receipt Date: 20110919
  Transmission Date: 20111222
  Serious: Yes (Other)
  Sender: FDA-Public Use
  Company Number: CA-JNJFOC-20110909664

PATIENT
  Sex: Female
  Weight: 45 kg

DRUGS (2)
  1. REMICADE [Suspect]
     Indication: CROHN'S DISEASE
     Dosage: WEEK '0'
     Route: 042
     Dates: start: 20110902
  2. PIPERACILLIN AND TAZOBACTAM [Interacting]
     Indication: PRODUCT USED FOR UNKNOWN INDICATION
     Route: 065

REACTIONS (6)
  - HEPATIC ENZYME INCREASED [None]
  - PYREXIA [None]
  - MYALGIA [None]
  - NEUTROPENIA [None]
  - RASH [None]
  - DRUG INTERACTION [None]
